FAERS Safety Report 5838567-9 (Version None)
Quarter: 2008Q3

REPORT INFORMATION
  Report Type: 
  Country: None (occurrence: None)
  Receive Date: 20080808
  Receipt Date: 20080807
  Transmission Date: 20090109
  Serious: Yes (Other)
  Sender: FDA-Public Use
  Company Number: A0739483A

PATIENT
  Sex: Male
  Weight: 128 kg

DRUGS (1)
  1. ALLI [Suspect]
     Dates: start: 20080512

REACTIONS (16)
  - ANXIETY [None]
  - BACK DISORDER [None]
  - BINGE EATING [None]
  - DEHYDRATION [None]
  - FATIGUE [None]
  - FLUID RETENTION [None]
  - FOOD CRAVING [None]
  - GASTROINTESTINAL DISORDER [None]
  - HYPERPHAGIA [None]
  - INGROWING NAIL [None]
  - INSOMNIA [None]
  - JOINT SPRAIN [None]
  - LIMB DISCOMFORT [None]
  - LOSS OF CONSCIOUSNESS [None]
  - WEIGHT FLUCTUATION [None]
  - WEIGHT INCREASED [None]
